FAERS Safety Report 11603327 (Version 1)
Quarter: 2015Q4

REPORT INFORMATION
  Report Type: Spontaneous
  Country: US (occurrence: None)
  Receive Date: 20151005
  Receipt Date: 20151005
  Transmission Date: 20160304
  Serious: Yes (Life-Threatening, Hospitalization)
  Sender: FDA-Public Use
  Company Number: None

PATIENT
  Age: 10 Year
  Sex: Male
  Weight: 27.58 kg

DRUGS (3)
  1. IBUPROFEN 200 MG [Suspect]
     Active Substance: IBUPROFEN
     Indication: INFLUENZA LIKE ILLNESS
     Dates: start: 20150923, end: 20150925
  2. IBUPROFEN 200 MG [Suspect]
     Active Substance: IBUPROFEN
     Indication: NASOPHARYNGITIS
     Dates: start: 20150923, end: 20150925
  3. IBUPROFEN 200 MG [Suspect]
     Active Substance: IBUPROFEN
     Indication: PYREXIA
     Dates: start: 20150923, end: 20150925

REACTIONS (1)
  - Stevens-Johnson syndrome [None]

NARRATIVE: CASE EVENT DATE: 20150924
